FAERS Safety Report 24818851 (Version 1)
Quarter: 2025Q1

REPORT INFORMATION
  Report Type: Spontaneous
  Country: US (occurrence: None)
  Receive Date: 20250107
  Receipt Date: 20250107
  Transmission Date: 20250408
  Serious: Yes (Other)
  Sender: FDA-CTU
  Company Number: None

PATIENT
  Age: 35 Year
  Sex: Male
  Weight: 92.25 kg

DRUGS (6)
  1. LEXAPRO [Suspect]
     Active Substance: ESCITALOPRAM OXALATE
     Indication: Depression
     Dates: start: 20150101, end: 20150101
  2. PAXIL [Suspect]
     Active Substance: PAROXETINE HYDROCHLORIDE
     Indication: Depression
  3. WELLBUTRIN [Concomitant]
     Active Substance: BUPROPION HYDROCHLORIDE
  4. OMEPRAZOLE [Concomitant]
     Active Substance: OMEPRAZOLE
  5. ABILIFY [Concomitant]
     Active Substance: ARIPIPRAZOLE
  6. Diaulfiram [Concomitant]

REACTIONS (4)
  - Anorgasmia [None]
  - Genital paraesthesia [None]
  - Erectile dysfunction [None]
  - Impaired quality of life [None]

NARRATIVE: CASE EVENT DATE: 20150101
